FAERS Safety Report 24238891 (Version 1)
Quarter: 2024Q3

REPORT INFORMATION
  Report Type: Report from Study
  Country: CN (occurrence: CN)
  Receive Date: 20240822
  Receipt Date: 20240822
  Transmission Date: 20241017
  Serious: Yes (Other)
  Sender: BAYER
  Company Number: CN-BAYER-2024A118453

PATIENT
  Age: 7 Decade
  Sex: Male

DRUGS (3)
  1. SORAFENIB [Suspect]
     Active Substance: SORAFENIB
     Indication: Laryngeal cancer
  2. SORAFENIB [Suspect]
     Active Substance: SORAFENIB
     Indication: Hepatic cancer
  3. SORAFENIB [Suspect]
     Active Substance: SORAFENIB
     Indication: Antiangiogenic therapy

REACTIONS (2)
  - IgA nephropathy [None]
  - Proteinuria [None]
